FAERS Safety Report 12846111 (Version 1)
Quarter: 2016Q4

REPORT INFORMATION
  Report Type: Spontaneous
  Country: US (occurrence: US)
  Receive Date: 20161014
  Receipt Date: 20161014
  Transmission Date: 20170207
  Serious: Yes (Other)
  Sender: FDA-Public Use
  Company Number: US-BAXTER-2016BAX051618

PATIENT
  Age: 60 Year
  Sex: Female
  Weight: 46 kg

DRUGS (7)
  1. TAXOL [Suspect]
     Active Substance: PACLITAXEL
     Indication: INVASIVE DUCTAL BREAST CARCINOMA
     Dosage: 4 CYCLES, ADJUVANT CHEMOTHERAPY
     Route: 065
  2. FOSAMAX [Suspect]
     Active Substance: ALENDRONATE SODIUM
     Indication: OSTEOPOROSIS
     Route: 048
     Dates: start: 201407
  3. TAMOXIFEN [Suspect]
     Active Substance: TAMOXIFEN
     Indication: INVASIVE DUCTAL BREAST CARCINOMA
     Dosage: 5 YEARS
     Route: 065
  4. CYCLOPHOSPHAMIDE FOR INJECTION, USP [Suspect]
     Active Substance: CYCLOPHOSPHAMIDE
     Indication: INVASIVE DUCTAL BREAST CARCINOMA
     Dosage: 4 CYCLES, ADJUVANT CHEMOTHERAPY
     Route: 065
  5. ARIMIDEX [Suspect]
     Active Substance: ANASTROZOLE
     Indication: PRODUCT USED FOR UNKNOWN INDICATION
     Route: 048
     Dates: start: 20140205
  6. DOXORUBICIN [Suspect]
     Active Substance: DOXORUBICIN
     Indication: INVASIVE DUCTAL BREAST CARCINOMA
     Dosage: 4 CYCLES, ADJUVANT CHEMOTHERAPY
     Route: 065
  7. ANASTROZOLE. [Suspect]
     Active Substance: ANASTROZOLE
     Indication: BREAST CANCER RECURRENT
     Route: 065
     Dates: start: 201402

REACTIONS (8)
  - Adenocarcinoma [Unknown]
  - Osteoporosis [Unknown]
  - Atelectasis [Unknown]
  - Tooth disorder [Unknown]
  - Bronchial obstruction [Unknown]
  - Breast cancer recurrent [Unknown]
  - Breast cancer metastatic [Unknown]
  - Malignant pleural effusion [Unknown]

NARRATIVE: CASE EVENT DATE: 20140114
